FAERS Safety Report 5635974-4 (Version None)
Quarter: 2008Q1

REPORT INFORMATION
  Report Type: 
  Country: None (occurrence: None)
  Receive Date: 20080224
  Receipt Date: 20080214
  Transmission Date: 20080703
  Serious: Yes (Hospitalization)
  Sender: FDA-Public Use
  Company Number: PHBS2008TR02108

PATIENT
  Age: 71 Year
  Sex: Female

DRUGS (5)
  1. DIOVAN HCT [Concomitant]
     Dosage: VALS 160 / HCT 12.5 MG/DAY
  2. NORVASC [Concomitant]
     Dosage: 5 MG, UNK
  3. VASTAREL [Concomitant]
     Dosage: 20 MG, UNK
  4. RANITAB [Concomitant]
     Dosage: 150 MG, UNK
  5. LESCOL XL [Suspect]
     Indication: HYPERCHOLESTEROLAEMIA
     Route: 048
     Dates: start: 20080110

REACTIONS (5)
  - ALANINE AMINOTRANSFERASE INCREASED [None]
  - ASPARTATE AMINOTRANSFERASE INCREASED [None]
  - BLOOD CREATINE PHOSPHOKINASE INCREASED [None]
  - BLOOD CREATININE INCREASED [None]
  - BLOOD UREA INCREASED [None]
